FAERS Safety Report 17902416 (Version 1)
Quarter: 2020Q2

REPORT INFORMATION
  Report Type: Spontaneous
  Country: PL (occurrence: PL)
  Receive Date: 20200617
  Receipt Date: 20200617
  Transmission Date: 20200714
  Serious: Yes (Hospitalization)
  Sender: FDA-Public Use
  Company Number: PL-EMD SERONO-9168099

PATIENT
  Age: 33 Year
  Sex: Female

DRUGS (1)
  1. REBIF [Suspect]
     Active Substance: INTERFERON BETA-1A
     Indication: PRODUCT USED FOR UNKNOWN INDICATION
     Dates: start: 20190604

REACTIONS (7)
  - Arthralgia [Unknown]
  - Micturition urgency [Unknown]
  - Asthenia [Unknown]
  - Myalgia [Unknown]
  - Feeling cold [Unknown]
  - Nausea [Unknown]
  - Chest discomfort [Unknown]
